FAERS Safety Report 20679654 (Version 1)
Quarter: 2022Q2

REPORT INFORMATION
  Report Type: Report from Study
  Country: ES (occurrence: ES)
  Receive Date: 20220406
  Receipt Date: 20220406
  Transmission Date: 20220721
  Serious: Yes (Hospitalization, Other)
  Sender: FDA-Public Use
  Company Number: ES-AMGEN-ESPCT2022056275

PATIENT
  Age: 80 Year
  Sex: Male
  Weight: 52.2 kg

DRUGS (10)
  1. PANITUMUMAB [Suspect]
     Active Substance: PANITUMUMAB
     Indication: Colorectal cancer metastatic
     Dosage: 310 MILLIGRAM, Q2WK
     Route: 042
     Dates: start: 20190617, end: 20190701
  2. PANITUMUMAB [Suspect]
     Active Substance: PANITUMUMAB
     Dosage: 250 MILLIGRAM, Q2WK
     Route: 042
  3. OXALIPLATIN [Suspect]
     Active Substance: OXALIPLATIN
     Indication: Colorectal cancer metastatic
     Dosage: 130 MILLIGRAM, Q2WK
     Route: 042
     Dates: start: 20190617, end: 20190701
  4. OXALIPLATIN [Suspect]
     Active Substance: OXALIPLATIN
     Dosage: 110 MILLIGRAM, Q2WK
     Route: 042
  5. LEUCOVORIN [Suspect]
     Active Substance: LEUCOVORIN
     Indication: Colorectal cancer metastatic
     Dosage: 620 MILLIGRAM, Q2WK
     Route: 042
     Dates: start: 20190617, end: 20190701
  6. LEUCOVORIN [Suspect]
     Active Substance: LEUCOVORIN
     Dosage: 620 MILLIGRAM, Q2WK
     Route: 042
  7. FLUOROURACIL [Suspect]
     Active Substance: FLUOROURACIL
     Indication: Colorectal cancer metastatic
     Dosage: 620 MILLIGRAM, Q2WK
     Route: 040
     Dates: start: 20190617, end: 20190701
  8. FLUOROURACIL [Suspect]
     Active Substance: FLUOROURACIL
     Dosage: 3700 MILLIGRAM, Q2WK
     Route: 041
     Dates: start: 20190617, end: 20190703
  9. FLUOROURACIL [Suspect]
     Active Substance: FLUOROURACIL
     Dosage: 500 MILLIGRAM, Q2WK
     Route: 040
  10. FLUOROURACIL [Suspect]
     Active Substance: FLUOROURACIL
     Dosage: 3000 MILLIGRAM, Q2WK
     Route: 041

REACTIONS (1)
  - Febrile neutropenia [Recovered/Resolved]

NARRATIVE: CASE EVENT DATE: 20190712
